FAERS Safety Report 4446262-6 (Version None)
Quarter: 2004Q3

REPORT INFORMATION
  Report Type: 
  Country: None (occurrence: None)
  Receive Date: 20040902
  Receipt Date: 20040520
  Transmission Date: 20050211
  Serious: Yes (Other)
  Sender: FDA-Public Use
  Company Number: 16856

PATIENT
  Age: 46 Year
  Sex: Female

DRUGS (4)
  1. ALDARA [Suspect]
     Dosage: SEE IMAGE
     Route: 061
     Dates: start: 20000710, end: 20000912
  2. PREDNISOLONE [Concomitant]
  3. AZATHIOPRINE [Concomitant]
  4. CYCLOSPORINE [Concomitant]

REACTIONS (3)
  - BLOOD CREATININE INCREASED [None]
  - BLOOD UREA INCREASED [None]
  - SKIN PAPILLOMA [None]
